FAERS Safety Report 13751186 (Version 1)
Quarter: 2017Q3

REPORT INFORMATION
  Report Type: Spontaneous
  Country: US (occurrence: US)
  Receive Date: 20170713
  Receipt Date: 20170713
  Transmission Date: 20171127
  Serious: No
  Sender: FDA-Public Use
  Company Number: US-ASTELLAS-2017US014114

PATIENT
  Age: 71 Year
  Sex: Male

DRUGS (1)
  1. MYRBETRIQ [Suspect]
     Active Substance: MIRABEGRON
     Indication: URINARY INCONTINENCE
     Dosage: 50 MG, ONCE DAILY (AT MIDNIGHT)
     Route: 065
     Dates: end: 20170324

REACTIONS (10)
  - Skin lesion [Not Recovered/Not Resolved]
  - Off label use [Unknown]
  - Eczema [Not Recovered/Not Resolved]
  - Haemorrhage [Recovering/Resolving]
  - Intentional product misuse [Unknown]
  - Scab [Not Recovered/Not Resolved]
  - Pain [Not Recovered/Not Resolved]
  - Localised infection [Not Recovered/Not Resolved]
  - Pruritus generalised [Not Recovered/Not Resolved]
  - Treatment noncompliance [Unknown]
